FAERS Safety Report 6354487-8 (Version None)
Quarter: 2009Q3

REPORT INFORMATION
  Report Type: 
  Country: None (occurrence: None)
  Receive Date: 20090914
  Receipt Date: 20090210
  Transmission Date: 20100115
  Serious: Yes (Other)
  Sender: FDA-Public Use
  Company Number: PHEH2009US10638

PATIENT
  Sex: Male

DRUGS (1)
  1. EXELON [Suspect]
     Indication: DEMENTIA ALZHEIMER'S TYPE
     Dosage: UNK, UNK
     Route: 065

REACTIONS (3)
  - DRUG WITHDRAWAL SYNDROME [None]
  - SKIN IRRITATION [None]
  - TREMOR [None]
